FAERS Safety Report 9799572 (Version 3)
Quarter: 2015Q3

REPORT INFORMATION
  Report Type: Spontaneous
  Country: US (occurrence: US)
  Receive Date: 20140106
  Receipt Date: 20150806
  Transmission Date: 20151125
  Serious: No
  Sender: FDA-Public Use
  Company Number: US-GILEAD-2010-0030125

PATIENT
  Age: 52 Year
  Sex: Female
  Weight: 50.8 kg

DRUGS (7)
  1. LETAIRIS [Suspect]
     Active Substance: AMBRISENTAN
     Indication: PULMONARY ARTERIAL HYPERTENSION
     Route: 048
     Dates: start: 20100225
  2. PARACETAMOL/HYDROCODONE BITARTRATE [Concomitant]
  3. RENVELA [Concomitant]
     Active Substance: SEVELAMER CARBONATE
  4. LYRICA [Concomitant]
     Active Substance: PREGABALIN
  5. MIRALAX [Concomitant]
     Active Substance: POLYETHYLENE GLYCOL 3350
  6. ASA LO-DOSE [Concomitant]
  7. PREMARIN [Concomitant]
     Active Substance: ESTROGENS, CONJUGATED

REACTIONS (3)
  - Epistaxis [Not Recovered/Not Resolved]
  - Gingival bleeding [Not Recovered/Not Resolved]
  - Haemoptysis [Not Recovered/Not Resolved]
